FAERS Safety Report 9276469 (Version 1)
Quarter: 2013Q2

REPORT INFORMATION
  Report Type: Spontaneous
  Country: IT (occurrence: IT)
  Receive Date: 20130507
  Receipt Date: 20130507
  Transmission Date: 20140414
  Serious: Yes (Hospitalization)
  Sender: FDA-Public Use
  Company Number: IT-BRISTOL-MYERS SQUIBB COMPANY-18764662

PATIENT
  Age: 86 Year
  Sex: Male

DRUGS (9)
  1. COUMADIN TABS 5 MG [Suspect]
     Indication: MITRAL VALVE REPLACEMENT
     Route: 048
     Dates: start: 20110101, end: 20130329
  2. LEVOFLOXACIN [Interacting]
     Indication: PNEUMONIA
     Route: 048
     Dates: start: 20130316, end: 20130323
  3. EUTIROX [Concomitant]
  4. OMNIC [Concomitant]
  5. LASIX [Concomitant]
  6. LYRICA [Concomitant]
  7. LOBIVON [Concomitant]
  8. LASITONE [Concomitant]
     Dosage: 1DF=25+37 MG CAPS
  9. TRIATEC [Concomitant]

REACTIONS (3)
  - Hypocoagulable state [Unknown]
  - Pneumonia [Unknown]
  - Drug interaction [Unknown]
